FAERS Safety Report 4984120-9 (Version None)
Quarter: 2006Q1

REPORT INFORMATION
  Report Type: 
  Country: None (occurrence: None)
  Receive Date: 20060303
  Receipt Date: 20050923
  Transmission Date: 20060701
  Serious: Yes (Other)
  Sender: FDA-Public Use
  Company Number: HQWYE704828SEP05

PATIENT
  Age: 60 Year
  Sex: Female
  Weight: 71.73 kg

DRUGS (4)
  1. ALAVERT D-12 (LORATADINE/PSEUDOEPHERINE SULFATE, TABLET, EXTENDED RELE [Suspect]
     Indication: HYPERSENSITIVITY
     Dosage: ONE TABLET EVERY 12 HOURS, ORAL
     Route: 048
     Dates: start: 20050922
  2. ALAVERT D-12 (LORATADINE/PSEUDOEPHERINE SULFATE, TABLET, EXTENDED RELE [Suspect]
     Indication: THROAT IRRITATION
     Dosage: ONE TABLET EVERY 12 HOURS, ORAL
     Route: 048
     Dates: start: 20050922
  3. ATORVASTATIN CALCIUM [Concomitant]
  4. AMLODIPINE BESYLATE [Concomitant]

REACTIONS (2)
  - DRUG ADMINISTRATION ERROR [None]
  - NAUSEA [None]
